FAERS Safety Report 14818379 (Version 2)
Quarter: 2018Q2

REPORT INFORMATION
  Report Type: Spontaneous
  Country: BR (occurrence: BR)
  Receive Date: 20180427
  Receipt Date: 20180517
  Transmission Date: 20180711
  Serious: Yes (Other)
  Sender: FDA-Public Use
  Company Number: BR-009507513-1804BRA009332

PATIENT
  Sex: Female

DRUGS (1)
  1. IMPLANON [Suspect]
     Active Substance: ETONOGESTREL
     Dosage: 1 IMPLANT, UNK
     Route: 059
     Dates: start: 20180413

REACTIONS (2)
  - Complication of device insertion [Not Recovered/Not Resolved]
  - Complication of drug implant insertion [Not Recovered/Not Resolved]

NARRATIVE: CASE EVENT DATE: 20180413
